FAERS Safety Report 18341760 (Version 1)
Quarter: 2020Q4

REPORT INFORMATION
  Report Type: Spontaneous
  Country: US (occurrence: US)
  Receive Date: 20201005
  Receipt Date: 20201005
  Transmission Date: 20210113
  Serious: Yes (Hospitalization, Other)
  Sender: FDA-Public Use
  Company Number: US-ROCHE-2669899

PATIENT
  Age: 60 Year
  Sex: Female
  Weight: 52.57 kg

DRUGS (2)
  1. TECENTRIQ [Suspect]
     Active Substance: ATEZOLIZUMAB
     Indication: SMALL CELL LUNG CANCER
  2. TECENTRIQ [Suspect]
     Active Substance: ATEZOLIZUMAB
     Indication: LUNG NEOPLASM MALIGNANT
     Route: 065

REACTIONS (4)
  - Hyponatraemia [Unknown]
  - Metastases to central nervous system [Unknown]
  - Arthralgia [Unknown]
  - Seizure [Unknown]

NARRATIVE: CASE EVENT DATE: 202009
